FAERS Safety Report 23297601 (Version 6)
Quarter: 2024Q2

REPORT INFORMATION
  Report Type: Spontaneous
  Country: JP (occurrence: JP)
  Receive Date: 20231214
  Receipt Date: 20240404
  Transmission Date: 20240716
  Serious: Yes (Hospitalization, Other)
  Sender: FDA-Public Use
  Company Number: JP-AMGEN-JPNSP2023168500

PATIENT
  Age: 70 Year
  Sex: Female
  Weight: 42 kg

DRUGS (14)
  1. BLINCYTO [Suspect]
     Active Substance: BLINATUMOMAB
     Indication: Acute lymphocytic leukaemia
     Dosage: 6.7 MICROGRAM, QD, DRIP INFUSION
     Route: 042
     Dates: start: 20230814, end: 20230820
  2. BLINCYTO [Suspect]
     Active Substance: BLINATUMOMAB
     Indication: Philadelphia chromosome positive
     Dosage: 20 MICROGRAM, QD, DRIP INFUSION
     Route: 042
     Dates: start: 20230821, end: 20230825
  3. BLINCYTO [Suspect]
     Active Substance: BLINATUMOMAB
     Dosage: 6.7 MICROGRAM, QD DRIP INFUSION, SECOND COURSE
     Route: 042
     Dates: start: 20230919, end: 20230925
  4. BLINCYTO [Suspect]
     Active Substance: BLINATUMOMAB
     Dosage: 15 MICROGRAM, QD, (DOSE INCREASED, 75% DOSE OF 15 MCG/M2)) DRIP INFUSION
     Route: 042
     Dates: start: 20230926, end: 20231016
  5. BLINCYTO [Suspect]
     Active Substance: BLINATUMOMAB
     Dosage: 15 MICROGRAM, QD, DRIP INFUSION, THIRD COURSE
     Route: 042
     Dates: start: 20231108, end: 20231112
  6. BLINCYTO [Suspect]
     Active Substance: BLINATUMOMAB
     Dosage: 15 MICROGRAM, QD, DRIP INFUSION
     Route: 042
     Dates: start: 20231115, end: 20231126
  7. BENSERAZIDE HYDROCHLORIDE\LEVODOPA [Concomitant]
     Active Substance: BENSERAZIDE HYDROCHLORIDE\LEVODOPA
     Indication: Parkinson^s disease
     Dosage: UNK, TID
     Dates: start: 20230523
  8. AMLODIPINE [Concomitant]
     Active Substance: AMLODIPINE BESYLATE
     Indication: Hypertension
     Dosage: 2.5 MILLIGRAM, QD
     Dates: start: 20230523
  9. CLOTIAZEPAM [Concomitant]
     Active Substance: CLOTIAZEPAM
     Indication: Parkinson^s disease
     Dosage: 5 MILLIGRAM, QD
     Dates: start: 20230523
  10. SULFAMETHOXAZOLE\TRIMETHOPRIM [Concomitant]
     Active Substance: SULFAMETHOXAZOLE\TRIMETHOPRIM
     Indication: Acute lymphocytic leukaemia
     Dosage: 1 G/DOSE, THRICE WEEKLY
     Dates: start: 20230606
  11. SULFAMETHOXAZOLE\TRIMETHOPRIM [Concomitant]
     Active Substance: SULFAMETHOXAZOLE\TRIMETHOPRIM
     Indication: Philadelphia chromosome positive
  12. NOXAFIL [Concomitant]
     Active Substance: POSACONAZOLE
     Indication: Philadelphia chromosome positive
     Dosage: 300 MILLIGRAM, QD
     Dates: start: 20230713
  13. NOXAFIL [Concomitant]
     Active Substance: POSACONAZOLE
     Indication: Acute lymphocytic leukaemia
  14. SODIUM CHLORIDE [Concomitant]
     Active Substance: SODIUM CHLORIDE

REACTIONS (4)
  - Immune effector cell-associated neurotoxicity syndrome [Recovered/Resolved]
  - Acute lymphocytic leukaemia [Not Recovered/Not Resolved]
  - Lipase increased [Recovered/Resolved]
  - Hepatic enzyme increased [Recovering/Resolving]

NARRATIVE: CASE EVENT DATE: 20230816
